FAERS Safety Report 8902200 (Version 1)
Quarter: 2012Q4

REPORT INFORMATION
  Report Type: 
  Country: GB (occurrence: GB)
  Receive Date: 20121112
  Receipt Date: 20121112
  Transmission Date: 20130627
  Serious: Yes (Other)
  Sender: FDA-Public Use
  Company Number: GB-JNJFOC-20121101787

PATIENT
  Sex: Female

DRUGS (2)
  1. XEPLION [Suspect]
     Indication: PRODUCT USED FOR UNKNOWN INDICATION
     Route: 030
  2. ORPHENADRINE [Concomitant]
     Indication: MOVEMENT DISORDER
     Route: 065

REACTIONS (3)
  - Dystonia [Unknown]
  - Corneal reflex decreased [Unknown]
  - Grunting [Unknown]
